FAERS Safety Report 6116641-X (Version None)
Quarter: 2009Q1

REPORT INFORMATION
  Report Type: 
  Country: None (occurrence: None)
  Receive Date: 20090314
  Receipt Date: 20090113
  Transmission Date: 20090719
  Serious: No
  Sender: FDA-Public Use
  Company Number: US-ABBOTT-08P-163-0494509-00

PATIENT
  Sex: Male
  Weight: 74.91 kg

DRUGS (7)
  1. HUMIRA [Suspect]
     Indication: PSORIATIC ARTHROPATHY
     Route: 058
     Dates: start: 20081208
  2. PREDNISONE [Concomitant]
     Indication: PSORIATIC ARTHROPATHY
  3. HYDROCODONE BITARTRATE [Concomitant]
     Indication: PSORIATIC ARTHROPATHY
  4. SINGULAIR [Concomitant]
     Indication: SINUS DISORDER
  5. FLONASE [Concomitant]
     Indication: SINUS DISORDER
  6. SUDAFED 12 HOUR [Concomitant]
     Indication: SINUS DISORDER
  7. BENADRYL [Concomitant]
     Indication: SINUS DISORDER

REACTIONS (5)
  - COUGH [None]
  - INCORRECT DOSE ADMINISTERED [None]
  - NASOPHARYNGITIS [None]
  - SINUSITIS [None]
  - WRONG TECHNIQUE IN DRUG USAGE PROCESS [None]
